FAERS Safety Report 4371709-3 (Version None)
Quarter: 2004Q2

REPORT INFORMATION
  Report Type: 
  Country: None (occurrence: None)
  Receive Date: 20040604
  Receipt Date: 20040604
  Transmission Date: 20050107
  Serious: Yes (Other)
  Sender: FDA-Public Use
  Company Number: None

PATIENT
  Age: 15 Year
  Sex: Male
  Weight: 72.5755 kg

DRUGS (3)
  1. PROMETHAZINE HCL AND DEXTROMETHORPHAN HYDROBROMIDE [Suspect]
     Indication: COUGH
     Dosage: 2 TSP 3X/DAY AS NEEDED FOR COUGH
     Dates: start: 20040329, end: 20040402
  2. PROMETHAZINE HCL AND DEXTROMETHORPHAN HYDROBROMIDE [Suspect]
     Indication: HYPERSENSITIVITY
     Dosage: 2 TSP 3X/DAY AS NEEDED FOR COUGH
     Dates: start: 20040329, end: 20040402
  3. PROMETHAZINE HCL AND DEXTROMETHORPHAN HYDROBROMIDE [Suspect]
     Indication: NASOPHARYNGITIS
     Dosage: 2 TSP 3X/DAY AS NEEDED FOR COUGH
     Dates: start: 20040329, end: 20040402

REACTIONS (6)
  - ANXIETY [None]
  - DEHYDRATION [None]
  - FEELING ABNORMAL [None]
  - NERVOUSNESS [None]
  - RESTLESSNESS [None]
  - THINKING ABNORMAL [None]
